FAERS Safety Report 9166989 (Version 7)
Quarter: 2016Q3

REPORT INFORMATION
  Report Type: Report from Study
  Country: CA (occurrence: CA)
  Receive Date: 20130317
  Receipt Date: 20160929
  Transmission Date: 20161109
  Serious: Yes (Hospitalization, Other)
  Sender: FDA-Public Use
  Company Number: CA-UCBSA-080638

PATIENT
  Age: 69 Year
  Sex: Female

DRUGS (21)
  1. CERTOLIZUMAB PEGOL RA [Suspect]
     Active Substance: CERTOLIZUMAB PEGOL
     Indication: RHEUMATOID ARTHRITIS
     Dosage: 400 MG, EV 2 WEEKS(QOW)
     Route: 058
     Dates: start: 20120228, end: 20120328
  2. CERTOLIZUMAB PEGOL RA [Suspect]
     Active Substance: CERTOLIZUMAB PEGOL
     Dosage: UNK, EV 4 WEEKS
     Dates: end: 2013
  3. MTX [Concomitant]
     Active Substance: METHOTREXATE SODIUM
     Indication: RHEUMATOID ARTHRITIS
     Dosage: 25 MG, WEEKLY (QW)
     Route: 058
     Dates: start: 20091117, end: 20130523
  4. MTX [Concomitant]
     Active Substance: METHOTREXATE SODIUM
     Indication: RHEUMATOID ARTHRITIS
     Dosage: 10 MG, WEEKLY (QW)
     Route: 058
     Dates: start: 201005, end: 201212
  5. CALCIUM [Concomitant]
     Active Substance: CALCIUM
  6. PREDNISOLONE. [Concomitant]
     Active Substance: PREDNISOLONE
     Indication: RHEUMATOID ARTHRITIS
     Dosage: DAILY DOSE:2.5 MG
     Route: 048
  7. VITAMIN D [Concomitant]
     Active Substance: CHOLECALCIFEROL
     Dosage: 1000 IU/D
  8. HCTZ [Concomitant]
     Active Substance: HYDROCHLOROTHIAZIDE
     Indication: HYPERTENSION
     Dosage: 25 MG, ONCE DAILY (QD)
     Route: 048
  9. CRESTOR [Concomitant]
     Active Substance: ROSUVASTATIN CALCIUM
     Indication: LOW DENSITY LIPOPROTEIN INCREASED
     Dosage: 10 MG, ONCE DAILY (QD)
     Route: 048
  10. GABAPENTIN. [Concomitant]
     Active Substance: GABAPENTIN
     Indication: EPILEPSY
     Dosage: 100 MG, 3X/DAY (TID)
     Route: 048
  11. GABAPENTIN. [Concomitant]
     Active Substance: GABAPENTIN
     Indication: NEURALGIA
  12. PERCOCET [Concomitant]
     Active Substance: ACETAMINOPHEN\OXYCODONE HYDROCHLORIDE
     Indication: PAIN
     Dosage: 5/325 MG, BID/PRN
     Route: 048
  13. LOSEC [Concomitant]
     Active Substance: OMEPRAZOLE
     Indication: GASTROOESOPHAGEAL REFLUX DISEASE
     Dosage: DAILY DOSE: 20 MG
     Route: 048
  14. PREDNISONE. [Concomitant]
     Active Substance: PREDNISONE
     Indication: RHEUMATOID ARTHRITIS
     Dosage: DAILY DOSE: 2.5 MG
     Route: 048
     Dates: start: 200903
  15. ACTOMOL [Concomitant]
  16. VENTOLIN [Concomitant]
     Active Substance: ALBUTEROL SULFATE
  17. CERTOLIZUMAB PEGOL RA [Suspect]
     Active Substance: CERTOLIZUMAB PEGOL
     Dosage: 400 MG, EV 4 WEEKS
     Route: 058
     Dates: start: 20120427, end: 201212
  18. FOLIC ACID. [Concomitant]
     Active Substance: FOLIC ACID
     Indication: VITAMIN SUPPLEMENTATION
     Dosage: 5 MG, ONCE DAILY (QD)
     Route: 048
  19. MICARDIS [Concomitant]
     Active Substance: TELMISARTAN
     Indication: HYPERTENSION
     Dosage: 80 MG, ONCE DAILY (QD)
     Route: 048
  20. DOMPERIDONE [Concomitant]
     Active Substance: DOMPERIDONE
     Dosage: UNK UNK, 3X/DAY (TID)
  21. FERROUS GLUCONATE [Concomitant]
     Active Substance: FERROUS GLUCONATE
     Indication: MINERAL SUPPLEMENTATION
     Dosage: 300 MG, 3X/DAY (TID)
     Route: 048

REACTIONS (6)
  - Pulmonary fibrosis [Recovering/Resolving]
  - Pneumonitis [Not Recovered/Not Resolved]
  - Arthralgia [Unknown]
  - Rheumatoid arthritis [Unknown]
  - Pericardial effusion [Recovered/Resolved]
  - Pneumonia [Recovered/Resolved]

NARRATIVE: CASE EVENT DATE: 201212
